FAERS Safety Report 14497232 (Version 8)
Quarter: 2018Q3

REPORT INFORMATION
  Report Type: Spontaneous
  Country: US (occurrence: US)
  Receive Date: 20180207
  Receipt Date: 20180712
  Transmission Date: 20181010
  Serious: Yes (Other)
  Sender: FDA-Public Use
  Company Number: US-AMGEN-USASP2018016322

PATIENT
  Age: 69 Year
  Sex: Female

DRUGS (4)
  1. ENBREL [Suspect]
     Active Substance: ETANERCEPT
     Indication: PRODUCT USED FOR UNKNOWN INDICATION
     Dosage: UNK
     Route: 065
  2. ENBREL [Suspect]
     Active Substance: ETANERCEPT
     Dosage: UNK
     Route: 065
  3. ENBREL [Suspect]
     Active Substance: ETANERCEPT
     Dosage: 50 MG, QWK
     Route: 065
  4. XELJANZ [Concomitant]
     Active Substance: TOFACITINIB CITRATE
     Dosage: 5 MG, BID

REACTIONS (22)
  - Hernia repair [Unknown]
  - Joint swelling [Unknown]
  - Muscle spasms [Unknown]
  - Sciatica [Unknown]
  - Urinary tract infection [Unknown]
  - Diarrhoea [Unknown]
  - Myalgia [Unknown]
  - Asthenia [Unknown]
  - Pulmonary embolism [Unknown]
  - Weight decreased [Unknown]
  - Sinus disorder [Unknown]
  - Musculoskeletal stiffness [Unknown]
  - Condition aggravated [Unknown]
  - Synovitis [Unknown]
  - Arthralgia [Unknown]
  - Joint range of motion decreased [Unknown]
  - Joint warmth [Unknown]
  - Tooth disorder [Unknown]
  - Pain [Unknown]
  - Gastrooesophageal reflux disease [Unknown]
  - Nasopharyngitis [Unknown]
  - Fatigue [Unknown]

NARRATIVE: CASE EVENT DATE: 201705
